FAERS Safety Report 23289604 (Version 1)
Quarter: 2023Q4

REPORT INFORMATION
  Report Type: Other
  Country: LV (occurrence: LV)
  Receive Date: 20231212
  Receipt Date: 20231212
  Transmission Date: 20240110
  Serious: Yes (Other)
  Sender: FDA-Public Use
  Company Number: LV-Merck Healthcare KGaA-2023492290

PATIENT
  Age: 39 Year
  Sex: Female

DRUGS (1)
  1. INTERFERON BETA-1A [Suspect]
     Active Substance: INTERFERON BETA-1A
     Indication: Multiple sclerosis
     Dates: start: 2017, end: 2022

REACTIONS (4)
  - Chronic kidney disease [Unknown]
  - Focal segmental glomerulosclerosis [Unknown]
  - Arteriosclerosis [Unknown]
  - Sensory disturbance [Unknown]

NARRATIVE: CASE EVENT DATE: 20210101
